FAERS Safety Report 16659236 (Version 1)
Quarter: 2019Q3

REPORT INFORMATION
  Report Type: Spontaneous
  Country: DE (occurrence: DE)
  Receive Date: 20190802
  Receipt Date: 20190802
  Transmission Date: 20191004
  Serious: Yes (Other)
  Sender: FDA-Public Use
  Company Number: DE-BEH-2019104815

PATIENT
  Age: 69 Year
  Sex: Male

DRUGS (4)
  1. HIZENTRA [Suspect]
     Active Substance: HUMAN IMMUNOGLOBULIN G
     Indication: CHRONIC INFLAMMATORY DEMYELINATING POLYRADICULONEUROPATHY
     Dosage: 10 GRAM, BIW
     Route: 058
     Dates: start: 20190512
  2. HIZENTRA [Suspect]
     Active Substance: HUMAN IMMUNOGLOBULIN G
     Dosage: 10 GRAM, TOT
     Route: 058
     Dates: start: 20190711, end: 20190711
  3. HIZENTRA [Suspect]
     Active Substance: HUMAN IMMUNOGLOBULIN G
     Dosage: 10 GRAM, TOT
     Route: 058
     Dates: start: 20190714, end: 20190714
  4. HIZENTRA [Suspect]
     Active Substance: HUMAN IMMUNOGLOBULIN G
     Dosage: 10 GRAM, BIW
     Route: 058
     Dates: start: 20190402

REACTIONS (4)
  - Injection site necrosis [Not Recovered/Not Resolved]
  - Injection site erythema [Recovered/Resolved]
  - Injection site reaction [Not Recovered/Not Resolved]
  - Infusion site extravasation [Unknown]

NARRATIVE: CASE EVENT DATE: 20190512
